FAERS Safety Report 5870642-5 (Version None)
Quarter: 2008Q3

REPORT INFORMATION
  Report Type: 
  Country: None (occurrence: None)
  Receive Date: 20080904
  Receipt Date: 20080828
  Transmission Date: 20090109
  Serious: Yes (Other)
  Sender: FDA-Public Use
  Company Number: PHHY2007CA00866

PATIENT
  Sex: Female

DRUGS (7)
  1. SANDOSTATIN LAR [Suspect]
     Indication: CARCINOID TUMOUR
     Dosage: 20 MG, QMO
     Route: 030
     Dates: start: 20040101
  2. COVERSYL [Concomitant]
     Indication: HYPERTENSION
     Dosage: 2 MG, QD
  3. COVERSYL [Concomitant]
     Indication: CARDIAC FAILURE
  4. NORVASC [Concomitant]
  5. ENALAPRIL MALEATE [Concomitant]
  6. ATENOLOL [Concomitant]
  7. LIPITOR [Concomitant]

REACTIONS (7)
  - ARTHRITIS [None]
  - BACK PAIN [None]
  - CARDIAC FAILURE [None]
  - DYSPNOEA EXERTIONAL [None]
  - HYPERTENSION [None]
  - OEDEMA PERIPHERAL [None]
  - PAIN IN EXTREMITY [None]
